FAERS Safety Report 14936700 (Version 1)
Quarter: 2018Q2

REPORT INFORMATION
  Report Type: Report from Study
  Country: None (occurrence: US)
  Receive Date: 20180525
  Receipt Date: 20180525
  Transmission Date: 20180711
  Serious: Yes (Hospitalization, Other)
  Sender: FDA-Public Use
  Company Number: US-ABBVIE-18K-163-2259418-00

PATIENT
  Age: 68 Year
  Sex: Male
  Weight: 90.8 kg

DRUGS (3)
  1. METHOTREXATE. [Suspect]
     Active Substance: METHOTREXATE
     Indication: RHEUMATOID ARTHRITIS
     Route: 065
     Dates: end: 2017
  2. HUMIRA [Suspect]
     Active Substance: ADALIMUMAB
     Route: 058
  3. HUMIRA [Suspect]
     Active Substance: ADALIMUMAB
     Indication: RHEUMATOID ARTHRITIS
     Route: 058
     Dates: start: 201710, end: 201710

REACTIONS (5)
  - Bacterial sepsis [Recovered/Resolved]
  - Cystitis [Recovered/Resolved]
  - Myelodysplastic syndrome [Not Recovered/Not Resolved]
  - White blood cell count decreased [Recovering/Resolving]
  - Anaemia [Recovering/Resolving]

NARRATIVE: CASE EVENT DATE: 2016
